FAERS Safety Report 6637891-X (Version None)
Quarter: 2010Q1

REPORT INFORMATION
  Report Type: 
  Country: None (occurrence: None)
  Receive Date: 20100317
  Receipt Date: 20100306
  Transmission Date: 20100710
  Serious: Yes (Other)
  Sender: FDA-Public Use
  Company Number: BR-JNJFOC-20100302368

PATIENT
  Age: 52 Year
  Sex: Female

DRUGS (3)
  1. REMICADE [Suspect]
     Indication: RHEUMATOID ARTHRITIS
     Dosage: DOSE: 2 OR 3 VIALS
     Route: 042
  2. CORTISONE [Concomitant]
     Indication: RHEUMATOID ARTHRITIS
  3. ANTI INFLAMMATORY DRUGS [Concomitant]
     Indication: RHEUMATOID ARTHRITIS

REACTIONS (2)
  - ACTINIC KERATOSIS [None]
  - PSORIASIS [None]
